FAERS Safety Report 9315568 (Version 1)
Quarter: 2013Q2

REPORT INFORMATION
  Report Type: Spontaneous
  Country: US (occurrence: US)
  Receive Date: 20130529
  Receipt Date: 20130529
  Transmission Date: 20140414
  Serious: Yes (Hospitalization)
  Sender: FDA-Public Use
  Company Number: US-ASTRAZENECA-2013SE35515

PATIENT
  Age: 66 Year
  Sex: Female
  Weight: 55.3 kg

DRUGS (6)
  1. ZESTRIL [Suspect]
     Indication: HYPERTENSION
     Route: 048
     Dates: start: 1992, end: 1995
  2. ZESTRIL [Suspect]
     Indication: HYPERTENSION
     Dosage: GENERIC LISINOPRIL, 10 MG TWICE DAILY
     Route: 048
     Dates: start: 1995, end: 1995
  3. ZESTRIL [Suspect]
     Indication: HYPERTENSION
     Route: 048
     Dates: start: 1995, end: 20130427
  4. ZESTRIL [Suspect]
     Indication: HYPERTENSION
     Dosage: GENERIC LISINOPRIL, 10 MG TWICE DAILY
     Route: 048
     Dates: start: 20130428, end: 20130430
  5. ZESTRIL [Suspect]
     Indication: HYPERTENSION
     Route: 048
     Dates: start: 20130501, end: 20130506
  6. ZESTRIL [Suspect]
     Indication: HYPERTENSION
     Dosage: GENERIC LISINOPRIL, 10 MG TWICE DAILY
     Route: 048
     Dates: start: 20130507

REACTIONS (7)
  - Hypertension [Recovered/Resolved]
  - Heart rate increased [Recovered/Resolved]
  - Vertigo [Recovered/Resolved]
  - Fall [Recovered/Resolved]
  - Contusion [Recovered/Resolved]
  - Dizziness [Recovered/Resolved]
  - Drug ineffective [Recovered/Resolved]
